FAERS Safety Report 5769535-3 (Version None)
Quarter: 2008Q2

REPORT INFORMATION
  Report Type: 
  Country: None (occurrence: None)
  Receive Date: 20080612
  Receipt Date: 20080414
  Transmission Date: 20081010
  Serious: No
  Sender: FDA-Public Use
  Company Number: US-ABBOTT-08P-163-0445220-00

PATIENT
  Sex: Female
  Weight: 81.266 kg

DRUGS (2)
  1. HUMIRA [Suspect]
     Indication: PSORIATIC ARTHROPATHY
     Route: 058
     Dates: start: 20080215
  2. PHENTERMINE [Suspect]
     Indication: WEIGHT DECREASED
     Route: 048
     Dates: start: 20080325, end: 20080406

REACTIONS (4)
  - ECZEMA [None]
  - PRURITUS GENERALISED [None]
  - RASH PRURITIC [None]
  - WEIGHT DECREASED [None]
